FAERS Safety Report 5317611-1 (Version None)
Quarter: 2007Q2

REPORT INFORMATION
  Report Type: 
  Country: None (occurrence: None)
  Receive Date: 20070507
  Receipt Date: 20070426
  Transmission Date: 20071010
  Serious: Yes (Other)
  Sender: FDA-Public Use
  Company Number: PHBS2007JP07345

PATIENT
  Age: 40 Year
  Sex: Male

DRUGS (5)
  1. LOCHOL [Suspect]
     Indication: HYPERLIPIDAEMIA
     Dosage: 40 MG/D
     Route: 048
     Dates: start: 20020101
  2. CONIEL [Concomitant]
     Dosage: 8 MG/D
     Route: 048
  3. DIOVAN [Concomitant]
     Dosage: 160 MG/D
     Route: 048
  4. LASIX [Concomitant]
     Dosage: 200 MG/D
     Route: 048
  5. ALDACTONE [Concomitant]
     Dosage: 25 MG/D
     Route: 048

REACTIONS (2)
  - BLOOD CREATINE PHOSPHOKINASE INCREASED [None]
  - BLOOD LACTATE DEHYDROGENASE INCREASED [None]
